FAERS Safety Report 4550475-2 (Version None)
Quarter: 2004Q4

REPORT INFORMATION
  Report Type: 
  Country: None (occurrence: None)
  Receive Date: 20041217
  Receipt Date: 20040804
  Transmission Date: 20050328
  Serious: Yes (Hospitalization)
  Sender: FDA-Public Use
  Company Number: 2004-BP-06492BP

PATIENT
  Age: 73 Year
  Sex: Female

DRUGS (3)
  1. SPIRIVA [Suspect]
     Dosage: (18 MCG), IH
     Route: 055
     Dates: end: 20040804
  2. ATENOLOL [Concomitant]
  3. LASIX (LASIX/SCH/) [Concomitant]

REACTIONS (1)
  - ATRIAL FIBRILLATION [None]
